FAERS Safety Report 9225804 (Version 1)
Quarter: 2013Q2

REPORT INFORMATION
  Report Type: Spontaneous
  Country: US (occurrence: None)
  Receive Date: 20130410
  Receipt Date: 20130410
  Transmission Date: 20140414
  Serious: Yes (Hospitalization)
  Sender: FDA-Public Use
  Company Number: None

PATIENT
  Age: 69 Year
  Sex: Female
  Weight: 68.8 kg

DRUGS (11)
  1. ANCEF [Suspect]
     Dosage: RECENT
     Route: 042
  2. NITROPASTE [Suspect]
     Dosage: 1 INCH ONCE TOPICAL?RECENT
  3. ASA [Concomitant]
  4. ATORVASTATIN [Concomitant]
  5. CLOPIDOGREL [Concomitant]
  6. COLACE [Concomitant]
  7. GABAPENTIN [Concomitant]
  8. HUMULIN [Concomitant]
  9. LORAZEPAM [Concomitant]
  10. METOPROLOL [Concomitant]
  11. NITROFURANTOIN [Concomitant]

REACTIONS (2)
  - Anaphylactic reaction [None]
  - Hyperglycaemia [None]
